FAERS Safety Report 8789603 (Version 1)
Quarter: 2012Q4

REPORT INFORMATION
  Report Type: Spontaneous
  Country: US (occurrence: None)
  Receive Date: 20120910
  Receipt Date: 20120910
  Transmission Date: 20130627
  Serious: Yes (Other)
  Sender: FDA-Public Use
  Company Number: None

PATIENT
  Age: 29 Year
  Sex: Male
  Weight: 86.18 kg

DRUGS (1)
  1. CREST PRO-HEALTH [Suspect]
     Dates: start: 20120907, end: 20120907

REACTIONS (2)
  - Swelling face [None]
  - Salivary gland enlargement [None]
